FAERS Safety Report 6098702-7 (Version None)
Quarter: 2009Q1

REPORT INFORMATION
  Report Type: 
  Country: None (occurrence: None)
  Receive Date: 20090302
  Receipt Date: 20090218
  Transmission Date: 20090719
  Serious: Yes (Hospitalization, Other)
  Sender: FDA-Public Use
  Company Number: DE-WYE-H05063708

PATIENT
  Sex: Male
  Weight: 88 kg

DRUGS (7)
  1. RAPAMUNE [Suspect]
     Indication: PROPHYLAXIS AGAINST TRANSPLANT REJECTION
     Dosage: 1 MG, FREQUENCY: 1-0-0
     Route: 048
     Dates: start: 20070124
  2. URSO FALK [Concomitant]
     Indication: CHOLELITHIASIS
     Dosage: UNSPECIFIED DOSE, FREQUENCY: 1-0-2
  3. PANTOPRAZOLE [Concomitant]
     Dosage: 10 MG, ^1-0-0^
  4. EMBOLEX [Concomitant]
     Indication: THROMBOSIS PROPHYLAXIS
     Dosage: ^1-0-0^
  5. MACROGOL [Concomitant]
     Indication: CONSTIPATION
     Dosage: ^1-0-0^
  6. CELLCEPT [Concomitant]
     Indication: IMMUNOSUPPRESSANT DRUG THERAPY
     Dosage: 1 G, ^1-0-1^
  7. BLOPRESS [Concomitant]
     Indication: HYPERTENSION
     Dosage: 8 MG, ^1-0-0^

REACTIONS (2)
  - HEPATIC NEOPLASM MALIGNANT RECURRENT [None]
  - METASTASES TO BONE [None]
